FAERS Safety Report 7911700-0 (Version None)
Quarter: 2011Q4

REPORT INFORMATION
  Report Type: 
  Country: None (occurrence: None)
  Receive Date: 20111109
  Receipt Date: 20111029
  Transmission Date: 20120403
  Serious: No
  Sender: FDA-Public Use
  Company Number: ADR-2009-7029

PATIENT
  Age: 40 Year
  Sex: Male

DRUGS (2)
  1. LIORESAL [Suspect]
     Indication: MUSCLE SPASTICITY
     Dosage: MCG, DAILY, INTRATH
     Route: 037
  2. LIORESAL [Suspect]
     Indication: SPINAL CORD INJURY
     Dosage: MCG, DAILY, INTRATH
     Route: 037

REACTIONS (2)
  - IMPLANT SITE INFECTION [None]
  - IMPLANT SITE OEDEMA [None]
